FAERS Safety Report 9438838 (Version 1)
Quarter: 2013Q3

REPORT INFORMATION
  Report Type: Report from Study
  Country: US (occurrence: US)
  Receive Date: 20130802
  Receipt Date: 20130802
  Transmission Date: 20140515
  Serious: Yes (Other)
  Sender: FDA-Public Use
  Company Number: US-US-EMD SERONO, INC.-7217255

PATIENT
  Sex: Male

DRUGS (3)
  1. REBIF [Suspect]
     Indication: MULTIPLE SCLEROSIS
     Route: 058
     Dates: start: 20091029
  2. INSULIN [Concomitant]
     Indication: DIABETES MELLITUS
  3. ALEVE                              /00256202/ [Concomitant]
     Indication: PREMEDICATION

REACTIONS (6)
  - Large intestine polyp [Recovered/Resolved]
  - Feeling abnormal [Not Recovered/Not Resolved]
  - Myalgia [Not Recovered/Not Resolved]
  - Pain [Not Recovered/Not Resolved]
  - Headache [Not Recovered/Not Resolved]
  - Injection site urticaria [Not Recovered/Not Resolved]
